FAERS Safety Report 7078043-1 (Version None)
Quarter: 2010Q4

REPORT INFORMATION
  Report Type: 
  Country: None (occurrence: None)
  Receive Date: 20101102
  Receipt Date: 20101025
  Transmission Date: 20110411
  Serious: No
  Sender: FDA-Public Use
  Company Number: 2009BI021291

PATIENT
  Age: 47 Year
  Sex: Female

DRUGS (3)
  1. TYSABRI [Suspect]
     Indication: MULTIPLE SCLEROSIS
     Route: 042
     Dates: start: 20090519, end: 20090616
  2. AVONEX [Concomitant]
     Indication: MULTIPLE SCLEROSIS
     Route: 030
     Dates: start: 20001001, end: 20090401
  3. AVONEX [Concomitant]
     Route: 030
     Dates: start: 20090720

REACTIONS (5)
  - HYPERSENSITIVITY [None]
  - HYPERVENTILATION [None]
  - MOBILITY DECREASED [None]
  - NASOPHARYNGITIS [None]
  - SKIN BURNING SENSATION [None]
